FAERS Safety Report 6936639-9 (Version None)
Quarter: 2010Q3

REPORT INFORMATION
  Report Type: 
  Country: None (occurrence: None)
  Receive Date: 20100823
  Receipt Date: 20100816
  Transmission Date: 20110219
  Serious: Yes (Hospitalization)
  Sender: FDA-Public Use
  Company Number: US-JNJFOC-20100806348

PATIENT
  Sex: Female
  Weight: 96.16 kg

DRUGS (12)
  1. FENTANYL CITRATE [Suspect]
     Indication: BACK PAIN
     Route: 062
  2. FENTANYL CITRATE [Suspect]
     Route: 062
  3. LISINOPRIL [Concomitant]
     Indication: BLOOD PRESSURE
     Route: 048
  4. SYNTHROID [Concomitant]
     Indication: THYROID DISORDER
     Route: 048
  5. NITROGLYCERIN [Concomitant]
     Indication: CARDIAC DISORDER
     Route: 062
  6. HUMULIN INSULIN [Concomitant]
     Indication: DIABETES MELLITUS
     Route: 058
  7. XANAX [Concomitant]
     Indication: ANXIETY
     Route: 048
  8. VICODIN [Concomitant]
     Indication: PAIN
     Route: 048
  9. TOPROL-XL [Concomitant]
     Route: 048
  10. PAXIL [Concomitant]
     Indication: DEPRESSION
     Route: 048
  11. METHOTREXATE [Concomitant]
     Indication: PSORIASIS
     Route: 048
  12. ASPIRIN [Concomitant]
     Indication: CARDIAC DISORDER
     Route: 048

REACTIONS (9)
  - CORONARY ARTERY OCCLUSION [None]
  - DRUG INEFFECTIVE [None]
  - FEELING ABNORMAL [None]
  - MYOCARDIAL INFARCTION [None]
  - NERVOUSNESS [None]
  - PRODUCT ADHESION ISSUE [None]
  - PRODUCT QUALITY ISSUE [None]
  - WITHDRAWAL SYNDROME [None]
  - WRONG TECHNIQUE IN DRUG USAGE PROCESS [None]
